FAERS Safety Report 13573385 (Version 1)
Quarter: 2017Q2

REPORT INFORMATION
  Report Type: Spontaneous
  Country: FR (occurrence: FR)
  Receive Date: 20170523
  Receipt Date: 20170523
  Transmission Date: 20170830
  Serious: Yes (Hospitalization, Other)
  Sender: FDA-Public Use
  Company Number: FR-AMGEN-FRASP2017074385

PATIENT
  Age: 68 Year
  Sex: Female

DRUGS (10)
  1. NOVORAPID [Concomitant]
     Active Substance: INSULIN ASPART
     Route: 058
  2. SECTRAL [Concomitant]
     Active Substance: ACEBUTOLOL HYDROCHLORIDE
     Dosage: 200 MG, QD
     Route: 048
  3. FENOFIBRATE. [Concomitant]
     Active Substance: FENOFIBRATE
     Route: 048
  4. BLINCYTO [Suspect]
     Active Substance: BLINATUMOMAB
     Dosage: 28 MUG, QD
     Route: 042
     Dates: start: 20170307
  5. STILNOX [Concomitant]
     Active Substance: ZOLPIDEM TARTRATE
     Route: 048
  6. BLINCYTO [Suspect]
     Active Substance: BLINATUMOMAB
     Indication: CHRONIC LYMPHOCYTIC LEUKAEMIA
     Dosage: 9 MUG, UNK
     Route: 042
     Dates: start: 20170220
  7. COAPROVEL [Concomitant]
     Active Substance: HYDROCHLOROTHIAZIDE\IRBESARTAN
     Indication: PRODUCT USED FOR UNKNOWN INDICATION
     Dosage: UNK
     Route: 048
  8. LEVOTHYROX [Concomitant]
     Active Substance: LEVOTHYROXINE
     Dosage: 75 MUG, QD
     Route: 048
  9. LANTUS [Concomitant]
     Active Substance: INSULIN GLARGINE
     Route: 058
  10. ZELITREX [Concomitant]
     Active Substance: VALACYCLOVIR HYDROCHLORIDE
     Dosage: 500 MG, BID
     Route: 048

REACTIONS (2)
  - Acute kidney injury [Recovered/Resolved]
  - Somnolence [Recovered/Resolved]

NARRATIVE: CASE EVENT DATE: 20170221
